FAERS Safety Report 8073482-4 (Version None)
Quarter: 2012Q1

REPORT INFORMATION
  Report Type: 
  Country: None (occurrence: None)
  Receive Date: 20120126
  Receipt Date: 20120126
  Transmission Date: 20120608
  Serious: Yes (Other)
  Sender: FDA-Public Use
  Company Number: None

PATIENT
  Age: 65 Year
  Sex: Male
  Weight: 88.45 kg

DRUGS (2)
  1. PATANASE [Suspect]
     Indication: NASAL POLYPS
     Dosage: 2 SPRAYS PER NOSTRIL
     Route: 045
     Dates: start: 20120115, end: 20120125
  2. PATANASE [Suspect]
     Indication: ACUTE SINUSITIS
     Dosage: 2 SPRAYS PER NOSTRIL
     Route: 045
     Dates: start: 20120115, end: 20120125

REACTIONS (1)
  - BLOOD PRESSURE INCREASED [None]
